FAERS Safety Report 21246058 (Version 3)
Quarter: 2022Q4

REPORT INFORMATION
  Report Type: Report from Study
  Country: ES (occurrence: None)
  Receive Date: 20220824
  Receipt Date: 20221004
  Transmission Date: 20230112
  Serious: Yes (Hospitalization)
  Sender: FDA-Public Use
  Company Number: ES-ROCHE-3155529

PATIENT
  Age: 53 Year
  Sex: Male
  Weight: 99.8 kg

DRUGS (27)
  1. GLOFITAMAB [Suspect]
     Active Substance: GLOFITAMAB
     Indication: Diffuse large B-cell lymphoma stage IV
     Dosage: START DATE OF MOST RECENT DOSE OF STUDY DRUG PRIOR TO AE 03-AUG-2022 11:55 AM?END DATE OF MOST RECEN
     Route: 042
     Dates: start: 20220803
  2. POLATUZUMAB VEDOTIN [Suspect]
     Active Substance: POLATUZUMAB VEDOTIN
     Indication: Diffuse large B-cell lymphoma stage IV
     Dosage: DOSE LAST STUDY DRUG ADMIN PRIOR AE/SAE: 187.02 MG?START DATE OF MOST RECENT DOSE OF STUDY DRUG PRIO
     Route: 042
     Dates: start: 20220706
  3. RITUXIMAB [Suspect]
     Active Substance: RITUXIMAB
     Indication: Diffuse large B-cell lymphoma stage IV
     Dosage: DOSE LAST STUDY DRUG ADMIN PRIOR AE/SAE: 873.38 MG/M2?TOTAL VOLUME PRIOR AE/SAE: 100 ML?START DATE O
     Route: 041
     Dates: start: 20220706
  4. CYCLOPHOSPHAMIDE [Suspect]
     Active Substance: CYCLOPHOSPHAMIDE
     Indication: Diffuse large B-cell lymphoma stage IV
     Dosage: DOSE LAST STUDY DRUG ADMIN PRIOR AE/SAE: 1746.75 MG/M2?TOTAL VOLUME PRIOR AE/SAE: 1746.75 ML?START D
     Route: 042
     Dates: start: 20220706
  5. DOXORUBICIN [Suspect]
     Active Substance: DOXORUBICIN
     Indication: Diffuse large B-cell lymphoma stage IV
     Dosage: DOSE LAST STUDY DRUG ADMIN PRIOR AE/SAE: 116.45 MG/M2?TOTAL VOLUME PRIOR AE/SAE: 116.45 ML?START DAT
     Route: 042
     Dates: start: 20220706
  6. PREDNISONE [Suspect]
     Active Substance: PREDNISONE
     Indication: Diffuse large B-cell lymphoma stage IV
     Dosage: DOSE LAST STUDY DRUG ADMIN PRIOR AE/SAE: 100 MG?START AND END DATE OF MOST RECENT DOSE OF STUDY DRUG
     Route: 048
     Dates: start: 20220707
  7. METHYLPREDNISOLONE [Suspect]
     Active Substance: METHYLPREDNISOLONE
     Indication: Diffuse large B-cell lymphoma stage IV
     Dosage: START DATE OF MOST RECENT DOSE OF STUDY DRUG PRIOR TO AE/SAE: 27/JUL/2022 11:17 AM
     Route: 048
     Dates: start: 20220706
  8. ACETAMINOPHEN [Concomitant]
     Active Substance: ACETAMINOPHEN
     Route: 048
     Dates: start: 20220727, end: 20220727
  9. ACETAMINOPHEN [Concomitant]
     Active Substance: ACETAMINOPHEN
     Route: 042
     Dates: start: 20220706, end: 20220706
  10. ACETAMINOPHEN [Concomitant]
     Active Substance: ACETAMINOPHEN
     Route: 048
     Dates: start: 20220706, end: 20220706
  11. ACETAMINOPHEN [Concomitant]
     Active Substance: ACETAMINOPHEN
     Route: 048
     Dates: start: 20220803, end: 20220803
  12. ONDANSETRON [Concomitant]
     Active Substance: ONDANSETRON
     Route: 048
     Dates: start: 20220706, end: 20220706
  13. DEXCHLORPHENIRAMINE [Concomitant]
     Active Substance: DEXCHLORPHENIRAMINE
     Route: 042
     Dates: start: 20220727, end: 20220727
  14. DEXCHLORPHENIRAMINE [Concomitant]
     Active Substance: DEXCHLORPHENIRAMINE
     Dosage: YES
     Route: 042
     Dates: start: 20220706, end: 20220706
  15. DEXCHLORPHENIRAMINE [Concomitant]
     Active Substance: DEXCHLORPHENIRAMINE
     Route: 042
     Dates: start: 20220706, end: 20220706
  16. DEXCHLORPHENIRAMINE [Concomitant]
     Active Substance: DEXCHLORPHENIRAMINE
     Route: 042
     Dates: start: 20220803, end: 20220803
  17. VERAPAMIL [Concomitant]
     Active Substance: VERAPAMIL HYDROCHLORIDE
  18. JARDIANCE [Concomitant]
     Active Substance: EMPAGLIFLOZIN
  19. ALPRAZOLAM [Concomitant]
     Active Substance: ALPRAZOLAM
  20. TORSEMIDE [Concomitant]
     Active Substance: TORSEMIDE
  21. SIMVASTATIN [Concomitant]
     Active Substance: SIMVASTATIN
  22. ZOFRAN [Concomitant]
     Active Substance: ONDANSETRON HYDROCHLORIDE
  23. ACYCLOVIR [Concomitant]
     Active Substance: ACYCLOVIR
  24. SULFAMETHOXAZOLE\TRIMETHOPRIM [Concomitant]
     Active Substance: SULFAMETHOXAZOLE\TRIMETHOPRIM
  25. ALLOPURINOL [Concomitant]
     Active Substance: ALLOPURINOL
  26. FILGRASTIM [Concomitant]
     Active Substance: FILGRASTIM
     Dates: start: 20220710, end: 20220712
  27. DEXAMETHASONE [Concomitant]
     Active Substance: DEXAMETHASONE
     Route: 042
     Dates: start: 20220803, end: 20220803

REACTIONS (1)
  - Cytokine release syndrome [Recovered/Resolved]

NARRATIVE: CASE EVENT DATE: 20220803
